FAERS Safety Report 8421862-7 (Version None)
Quarter: 2012Q2

REPORT INFORMATION
  Report Type: 
  Country: None (occurrence: None)
  Receive Date: 20120608
  Receipt Date: 20120605
  Transmission Date: 20120825
  Serious: Yes (Other)
  Sender: FDA-Public Use
  Company Number: US-PFIZER INC-2012135399

PATIENT
  Sex: Male
  Weight: 102.04 kg

DRUGS (2)
  1. CHANTIX [Suspect]
     Indication: SMOKING CESSATION THERAPY
     Dosage: 0.5 MG, 1X/DAY
     Route: 048
     Dates: start: 20090101, end: 20090101
  2. DEPAKOTE [Concomitant]
     Dosage: UNK

REACTIONS (3)
  - BLOOD CHOLESTEROL INCREASED [None]
  - FEELING DRUNK [None]
  - CHOKING [None]
